FAERS Safety Report 11756568 (Version 1)
Quarter: 2015Q4

REPORT INFORMATION
  Report Type: Spontaneous
  Country: BE (occurrence: BE)
  Receive Date: 20151119
  Receipt Date: 20151119
  Transmission Date: 20160304
  Serious: Yes (Hospitalization)
  Sender: FDA-Public Use
  Company Number: BE-ROCHE-1663111

PATIENT
  Sex: Female
  Weight: 66 kg

DRUGS (1)
  1. VALIUM [Suspect]
     Active Substance: DIAZEPAM
     Indication: PRODUCT USED FOR UNKNOWN INDICATION
     Dosage: 1/2 CO IN EVENING
     Route: 065
     Dates: start: 2005, end: 201508

REACTIONS (5)
  - Gastritis [Unknown]
  - Skin ulcer [Recovering/Resolving]
  - Iron deficiency anaemia [Unknown]
  - Thrombocytopenia [Not Recovered/Not Resolved]
  - Peripheral venous disease [Unknown]

NARRATIVE: CASE EVENT DATE: 2015
